FAERS Safety Report 24433795 (Version 1)
Quarter: 2024Q4

REPORT INFORMATION
  Report Type: Spontaneous
  Country: US (occurrence: US)
  Receive Date: 20241014
  Receipt Date: 20241014
  Transmission Date: 20250115
  Serious: No
  Sender: SPROUT PHARMACEUTICALS, INC.
  Company Number: US-Sprout Pharmaceuticals, Inc.-2023SP000357

PATIENT
  Age: 36 Year
  Sex: Female

DRUGS (2)
  1. ADDYI [Suspect]
     Active Substance: FLIBANSERIN
     Indication: Libido decreased
     Dosage: RX # 9274183
     Route: 048
     Dates: start: 20231124, end: 20231124
  2. ADDYI [Suspect]
     Active Substance: FLIBANSERIN
     Indication: Libido decreased

REACTIONS (6)
  - Dizziness [Recovered/Resolved]
  - Adverse drug reaction [Recovered/Resolved]
  - Hypoaesthesia [Recovered/Resolved]
  - Hypoaesthesia oral [Recovered/Resolved]
  - Dysarthria [Recovered/Resolved]
  - Gait disturbance [Recovered/Resolved]

NARRATIVE: CASE EVENT DATE: 20231124
